FAERS Safety Report 22156790 (Version 3)
Quarter: 2024Q1

REPORT INFORMATION
  Report Type: Spontaneous
  Country: US (occurrence: US)
  Receive Date: 20230330
  Receipt Date: 20240212
  Transmission Date: 20240409
  Serious: Yes (Other)
  Sender: FDA-Public Use
  Company Number: US-PFIZER INC-PV202300056497

PATIENT
  Age: 66 Year
  Sex: Female

DRUGS (3)
  1. IBRANCE [Suspect]
     Active Substance: PALBOCICLIB
     Dosage: 125 MG
  2. IBRANCE [Suspect]
     Active Substance: PALBOCICLIB
     Dosage: 100 MG, DAILY (TAKE 1 TABLET)
     Route: 048
  3. XANAX [Concomitant]
     Active Substance: ALPRAZOLAM
     Indication: Anxiety
     Dosage: 0.5 MG (1 TABLET),2 TIMES A DAY AS NEEDED
     Route: 048

REACTIONS (5)
  - Hypothyroidism [Unknown]
  - Neoplasm progression [Unknown]
  - Depression [Unknown]
  - Sinus tachycardia [Unknown]
  - Reflux laryngitis [Unknown]
